FAERS Safety Report 7094524-9 (Version None)
Quarter: 2010Q4

REPORT INFORMATION
  Report Type: 
  Country: None (occurrence: None)
  Receive Date: 20101110
  Receipt Date: 20101105
  Transmission Date: 20110411
  Serious: Yes (Hospitalization)
  Sender: FDA-Public Use
  Company Number: CHPA2010IT15606

PATIENT
  Sex: Female

DRUGS (12)
  1. VOLTAREN [Suspect]
     Indication: ARTHRALGIA
     Dosage: UNK, UNK
     Route: 061
     Dates: start: 20100510, end: 20100520
  2. BISOPROLOL (NGX) [Suspect]
     Indication: MYOCARDIAL INFARCTION
     Dosage: 2.5 MG, UNK
     Dates: start: 20100527, end: 20100614
  3. ASPIRIN [Suspect]
     Indication: MYOCARDIAL INFARCTION
     Dosage: 1 DF, UNK
     Dates: start: 20070601, end: 20100614
  4. ^CALCIO CARBONATO^ [Concomitant]
  5. EUTIROX [Concomitant]
     Dosage: 100 MG, UNK
  6. ESKIM [Concomitant]
  7. AUGMENTIN '125' [Concomitant]
     Indication: PHARYNGOTONSILLITIS
     Dosage: UNK
     Dates: start: 20100610, end: 20100614
  8. BENTELAN [Concomitant]
     Indication: EYE OEDEMA
     Dosage: UNK
     Dates: start: 20100610
  9. BENTELAN [Concomitant]
     Indication: LIP OEDEMA
  10. PEPTAZOL [Concomitant]
  11. CRESTOR [Concomitant]
  12. MODURETIC 5-50 [Concomitant]

REACTIONS (1)
  - STEVENS-JOHNSON SYNDROME [None]
